FAERS Safety Report 16608479 (Version 1)
Quarter: 2019Q3

REPORT INFORMATION
  Report Type: Spontaneous
  Country: US (occurrence: US)
  Receive Date: 20190719
  Receipt Date: 20190719
  Transmission Date: 20191004
  Serious: Yes (Life-Threatening, Other)
  Sender: FDA-Public Use
  Company Number: None

PATIENT
  Age: 38 Year
  Sex: Female
  Weight: 100.35 kg

DRUGS (1)
  1. EMGALITY [Suspect]
     Active Substance: GALCANEZUMAB-GNLM
     Indication: MIGRAINE
     Dates: start: 20190118, end: 20190318

REACTIONS (8)
  - Middle insomnia [None]
  - Nightmare [None]
  - Memory impairment [None]
  - Paranoia [None]
  - Suicide attempt [None]
  - Contusion [None]
  - Stress [None]
  - Drug ineffective [None]

NARRATIVE: CASE EVENT DATE: 20190118
